FAERS Safety Report 9844717 (Version 1)
Quarter: 2014Q1

REPORT INFORMATION
  Report Type: Spontaneous
  Country: CN (occurrence: None)
  Receive Date: 20140122
  Receipt Date: 20140122
  Transmission Date: 20141002
  Serious: Yes (Other)
  Sender: FDA-Public Use
  Company Number: 2014CN00005

PATIENT
  Age: 27 Year
  Sex: Female

DRUGS (7)
  1. EPIRUBICIN [Suspect]
     Indication: BREAST CANCER
     Dosage: ON DAY 1 (EVERY 3-4 WEEKS)
  2. CYCLOPHOSPHAMIDE [Suspect]
     Indication: BREAST CANCER
     Dosage: ON DAY 1 (EVERY 3-4 WEEKS)
  3. VINDESINE [Suspect]
     Indication: BREAST CANCER
     Dosage: ON DAY 1 (EVERY 3-4 WEEKS)
  4. PREDNISOLONE [Suspect]
     Indication: BREAST CANCER
     Dosage: ON DAYS 1-5 (EVERY 3-4 WEEKS)
  5. GEMCITABINE [Suspect]
     Indication: BREAST CANCER
     Dosage: ON DAYS 1-5 (EVERY 3-4 WEEKS)
  6. DEXAMETHASONE [Suspect]
     Indication: BREAST CANCER
     Dosage: ON DAYS 1-4 (EVERY 3-4 WEEKS)
  7. CISPLATIN [Suspect]
     Indication: BREAST CANCER
     Dosage: ON DAYS 1-3(EVERY 3-4 WEEKS)

REACTIONS (1)
  - Drug resistance [None]
